FAERS Safety Report 21672121 (Version 1)
Quarter: 2022Q4

REPORT INFORMATION
  Report Type: Report from Study
  Country: US (occurrence: US)
  Receive Date: 20221202
  Receipt Date: 20221202
  Transmission Date: 20230112
  Serious: No
  Sender: FDA-Public Use
  Company Number: US-ZOGENIX INTERNATIONAL LIMITED-ZX008-2017-00103

PATIENT
  Age: 15 Year
  Sex: Female
  Weight: 60 kg

DRUGS (12)
  1. FENFLURAMINE HYDROCHLORIDE [Suspect]
     Active Substance: FENFLURAMINE HYDROCHLORIDE
     Indication: Severe myoclonic epilepsy of infancy
     Dosage: BLINDED
     Route: 048
     Dates: start: 20170421
  2. FENFLURAMINE HYDROCHLORIDE [Suspect]
     Active Substance: FENFLURAMINE HYDROCHLORIDE
     Indication: Severe myoclonic epilepsy of infancy
     Dosage: BLINDED
     Route: 048
     Dates: start: 20170421
  3. FENFLURAMINE HYDROCHLORIDE [Suspect]
     Active Substance: FENFLURAMINE HYDROCHLORIDE
     Indication: Severe myoclonic epilepsy of infancy
     Dosage: BLINDED
     Route: 048
     Dates: start: 20170421
  4. PLACEBO [Suspect]
     Active Substance: UNSPECIFIED INGREDIENT
     Indication: Severe myoclonic epilepsy of infancy
     Dosage: BLINDED
     Route: 048
     Dates: start: 20170421
  5. CELONTIN [Concomitant]
     Active Substance: METHSUXIMIDE
     Indication: Epilepsy
     Dosage: 600 MG MILLIGRAM(S), BID
     Route: 048
     Dates: start: 2012
  6. VERAPAMIL [Concomitant]
     Active Substance: VERAPAMIL HYDROCHLORIDE
     Indication: Epilepsy
     Dosage: 60 MG MILLIGRAM(S), BID
     Route: 048
     Dates: start: 2015
  7. CLOBAZAM [Concomitant]
     Active Substance: CLOBAZAM
     Indication: Epilepsy
     Dosage: 10 MG MILLIGRAM(S), QD
     Route: 048
     Dates: start: 200411
  8. CLOBAZAM [Concomitant]
     Active Substance: CLOBAZAM
     Dosage: 15 MG MILLIGRAM(S), QD
     Route: 048
     Dates: start: 200411
  9. BANZEL [Concomitant]
     Active Substance: RUFINAMIDE
     Indication: Epilepsy
     Dosage: 800 MG MILLIGRAM(S), QD
     Route: 048
     Dates: start: 2012
  10. BANZEL [Concomitant]
     Active Substance: RUFINAMIDE
     Dosage: 1000 MG MILLIGRAM(S), QD
     Route: 048
     Dates: start: 2012
  11. MELATONIN [Concomitant]
     Active Substance: MELATONIN
     Indication: Insomnia
     Dosage: 5 MG MILLIGRAM(S), HS
     Route: 048
     Dates: start: 2016
  12. DEPO-PROVERA [Concomitant]
     Active Substance: MEDROXYPROGESTERONE ACETATE
     Indication: Contraception
     Dosage: 150 MG MILLIGRAM(S), Q2-3 MONTHS
     Route: 030
     Dates: start: 201511

REACTIONS (1)
  - Echocardiogram abnormal [Not Recovered/Not Resolved]

NARRATIVE: CASE EVENT DATE: 20170606
